FAERS Safety Report 8308662-3 (Version None)
Quarter: 2012Q2

REPORT INFORMATION
  Report Type: 
  Country: None (occurrence: None)
  Receive Date: 20120424
  Receipt Date: 20120418
  Transmission Date: 20120825
  Serious: No
  Sender: FDA-Public Use
  Company Number: US-PFIZER INC-2012019159

PATIENT
  Sex: Female

DRUGS (4)
  1. RELPAX [Suspect]
     Dosage: UNK
  2. LIPITOR [Suspect]
     Dosage: UNK
  3. LISINOPRIL AND HYDROCHLOROTHIAZIDE [Suspect]
     Dosage: UNK
  4. NEURONTIN [Suspect]
     Dosage: UNK

REACTIONS (5)
  - MIGRAINE [None]
  - ARTHRALGIA [None]
  - WEIGHT INCREASED [None]
  - BACK PAIN [None]
  - NECK PAIN [None]
